FAERS Safety Report 7074436-7 (Version None)
Quarter: 2010Q4

REPORT INFORMATION
  Report Type: 
  Country: None (occurrence: None)
  Receive Date: 20101021
  Receipt Date: 20101006
  Transmission Date: 20110411
  Serious: Yes (Hospitalization)
  Sender: FDA-Public Use
  Company Number: 019967

PATIENT
  Sex: Female
  Weight: 59 kg

DRUGS (2)
  1. CIMZIA [Suspect]
     Indication: CROHN'S DISEASE
     Dosage: (400 MG 1X/MONTH SUBCUTANEOUS)
     Route: 058
     Dates: start: 20100101, end: 20100717
  2. PREDNISONE [Concomitant]

REACTIONS (2)
  - FUNGAL OESOPHAGITIS [None]
  - RECTAL ABSCESS [None]
